FAERS Safety Report 26101557 (Version 1)
Quarter: 2025Q4

REPORT INFORMATION
  Report Type: Report from Study
  Country: CA (occurrence: CA)
  Receive Date: 20251128
  Receipt Date: 20251128
  Transmission Date: 20260117
  Serious: Yes (Other)
  Sender: NOVARTIS
  Company Number: CA-002147023-NVSC2025CA183473

PATIENT
  Sex: Female

DRUGS (2)
  1. GILENYA [Suspect]
     Active Substance: FINGOLIMOD HYDROCHLORIDE
     Indication: Relapsing-remitting multiple sclerosis
     Dosage: UNK, EVERY OTHER DAY
     Route: 065
     Dates: start: 2022
  2. GILENYA [Suspect]
     Active Substance: FINGOLIMOD HYDROCHLORIDE
     Dosage: 0.5 MG, QD
     Route: 065

REACTIONS (7)
  - Progressive multifocal leukoencephalopathy [Unknown]
  - Immunosuppression [Unknown]
  - Meningitis cryptococcal [Unknown]
  - Myelitis transverse [Unknown]
  - Multiple sclerosis [Unknown]
  - Lymphopenia [Unknown]
  - Inappropriate schedule of product administration [Unknown]
